FAERS Safety Report 9844959 (Version 1)
Quarter: 2014Q1

REPORT INFORMATION
  Report Type: Spontaneous
  Country: DK (occurrence: None)
  Receive Date: 20140122
  Receipt Date: 20140122
  Transmission Date: 20141002
  Serious: Yes (Death)
  Sender: FDA-Public Use
  Company Number: 2013RN000032

PATIENT
  Age: 59 Week
  Sex: Female

DRUGS (12)
  1. ZOVIRAX [Suspect]
     Indication: COMBINED IMMUNODEFICIENCY
     Route: 048
     Dates: start: 201302
  2. CO-TRIMOXAZOLE [Suspect]
     Indication: COMBINED IMMUNODEFICIENCY
     Route: 048
     Dates: start: 201302
  3. AMIKACIN SULFATE [Suspect]
     Indication: DISSEMINATED TUBERCULOSIS
     Route: 042
     Dates: start: 20130524
  4. MOXIFLOXACIN HYDROCHLORIDE [Suspect]
     Indication: DISSEMINATED TUBERCULOSIS
     Route: 042
     Dates: start: 20130524
  5. RIFAMPICIN (RIFAMPICIN) [Suspect]
     Indication: DISSEMINATED TUBERCULOSIS
     Route: 042
     Dates: start: 20130524
  6. ISONIAZID (ISONIAZID) [Suspect]
     Indication: DISSEMINATED TUBERCULOSIS
     Route: 042
     Dates: start: 20130524
  7. ETHAMBUTOL HYDROCHLORIDE [Suspect]
     Indication: DISSEMINATED TUBERCULOSIS
     Route: 042
     Dates: start: 20130524
  8. DICLOFENAC [Suspect]
     Indication: PAIN
     Dosage: 12.5MG, QD, RECTAL
     Dates: start: 201305
  9. PARACETAMOL (PARACETAMOL) [Suspect]
     Indication: PAIN
     Route: 048
     Dates: start: 201302
  10. FLUCONAZOLE (FLUCONAZOLE) [Suspect]
     Indication: COMBINED IMMUNODEFICIENCY
     Route: 048
     Dates: start: 201302
  11. INTERLEUKIN-2 [Suspect]
     Indication: DISSEMINATED TUBERCULOSIS
     Route: 058
     Dates: start: 20130822
  12. NORMAL IMMUNOGLOBULIN (IMMUNOGLOBULIN HUMAN NORMAL) [Concomitant]

REACTIONS (9)
  - Respiratory arrest [None]
  - Cardiac arrest [None]
  - Flatulence [None]
  - Oedema peripheral [None]
  - Dyskinesia [None]
  - Drug interaction [None]
  - Vomiting [None]
  - Acute respiratory failure [None]
  - Sudden death [None]
